FAERS Safety Report 4768336-2 (Version None)
Quarter: 2005Q3

REPORT INFORMATION
  Report Type: 
  Country: None (occurrence: None)
  Receive Date: 20050906
  Receipt Date: 20050729
  Transmission Date: 20060218
  Serious: No
  Sender: FDA-Public Use
  Company Number: 2005-BP-12964BP

PATIENT
  Age: 77 Year
  Sex: Male

DRUGS (3)
  1. SPIRIVA [Suspect]
     Indication: ASTHMA
     Dosage: 36 MCG (18 MCG, BID), IH
     Route: 055
     Dates: start: 20040601
  2. SPIRIVA [Suspect]
     Indication: EMPHYSEMA
     Dosage: 36 MCG (18 MCG, BID), IH
     Route: 055
     Dates: start: 20040601
  3. COMBIVENT (COMBIVENT  /GFR/) [Concomitant]

REACTIONS (1)
  - DIZZINESS [None]
